FAERS Safety Report 4677270-8 (Version None)
Quarter: 2005Q2

REPORT INFORMATION
  Report Type: 
  Country: None (occurrence: None)
  Receive Date: 20050526
  Receipt Date: 20050520
  Transmission Date: 20051028
  Serious: Yes (Death)
  Sender: FDA-Public Use
  Company Number: 200510512BVD

PATIENT

DRUGS (1)
  1. AVALOX (MOXIFLOXACIN HYDROCHLORIDE) [Suspect]
     Indication: PNEUMONIA
     Dosage: INTRAVENOUS
     Route: 042

REACTIONS (1)
  - DEATH [None]
